FAERS Safety Report 22331487 (Version 1)
Quarter: 2023Q2

REPORT INFORMATION
  Report Type: Report from Study
  Country: US (occurrence: None)
  Receive Date: 20230517
  Receipt Date: 20230517
  Transmission Date: 20230722
  Serious: Yes (Other)
  Sender: FDA-Public Use
  Company Number: US-ROCHE-3349388

PATIENT

DRUGS (46)
  1. RITUXIMAB [Suspect]
     Active Substance: RITUXIMAB
     Indication: Burkitt^s lymphoma
     Route: 041
     Dates: start: 20160406, end: 20160406
  2. RITUXIMAB [Suspect]
     Active Substance: RITUXIMAB
     Route: 041
     Dates: start: 20160503, end: 20160503
  3. RITUXIMAB [Suspect]
     Active Substance: RITUXIMAB
     Route: 041
     Dates: start: 20160524, end: 20160524
  4. RITUXIMAB [Suspect]
     Active Substance: RITUXIMAB
     Route: 041
     Dates: start: 20160712, end: 20160712
  5. RITUXIMAB [Suspect]
     Active Substance: RITUXIMAB
     Route: 041
     Dates: start: 20160808, end: 20160808
  6. CYCLOPHOSPHAMIDE [Suspect]
     Active Substance: CYCLOPHOSPHAMIDE
     Indication: Burkitt^s lymphoma
     Route: 065
     Dates: start: 20160411, end: 20160411
  7. CYCLOPHOSPHAMIDE [Suspect]
     Active Substance: CYCLOPHOSPHAMIDE
     Route: 065
     Dates: start: 20160507, end: 20160507
  8. CYCLOPHOSPHAMIDE [Suspect]
     Active Substance: CYCLOPHOSPHAMIDE
     Route: 065
     Dates: start: 20160528, end: 20160528
  9. CYCLOPHOSPHAMIDE [Suspect]
     Active Substance: CYCLOPHOSPHAMIDE
     Route: 065
     Dates: start: 20160618, end: 20160618
  10. CYCLOPHOSPHAMIDE [Suspect]
     Active Substance: CYCLOPHOSPHAMIDE
     Route: 065
     Dates: start: 20160716, end: 20160716
  11. CYCLOPHOSPHAMIDE [Suspect]
     Active Substance: CYCLOPHOSPHAMIDE
     Route: 065
     Dates: start: 20160813, end: 20160813
  12. CYTARABINE [Suspect]
     Active Substance: CYTARABINE
     Indication: Burkitt^s lymphoma
     Route: 065
     Dates: start: 20160525, end: 20160525
  13. CYTARABINE [Suspect]
     Active Substance: CYTARABINE
     Route: 065
     Dates: start: 20160614, end: 20160614
  14. CYTARABINE [Suspect]
     Active Substance: CYTARABINE
     Route: 065
     Dates: start: 20160712, end: 20160712
  15. CYTARABINE [Suspect]
     Active Substance: CYTARABINE
     Route: 065
     Dates: start: 20160809, end: 20160809
  16. DOXORUBICIN [Suspect]
     Active Substance: DOXORUBICIN
     Indication: Burkitt^s lymphoma
     Route: 065
     Dates: start: 20160406, end: 20160409
  17. DOXORUBICIN [Suspect]
     Active Substance: DOXORUBICIN
     Route: 065
     Dates: start: 20160503, end: 20160506
  18. DOXORUBICIN [Suspect]
     Active Substance: DOXORUBICIN
     Route: 065
     Dates: start: 20160524, end: 20160527
  19. DOXORUBICIN [Suspect]
     Active Substance: DOXORUBICIN
     Route: 065
     Dates: start: 20160614, end: 20160617
  20. DOXORUBICIN [Suspect]
     Active Substance: DOXORUBICIN
     Route: 065
     Dates: start: 20160712, end: 20160715
  21. DOXORUBICIN [Suspect]
     Active Substance: DOXORUBICIN
     Route: 065
     Dates: start: 20160809, end: 20160812
  22. VINCRISTINE [Suspect]
     Active Substance: VINCRISTINE
     Indication: Burkitt^s lymphoma
     Route: 065
     Dates: start: 20160406, end: 20160409
  23. VINCRISTINE [Suspect]
     Active Substance: VINCRISTINE
     Route: 065
     Dates: start: 20160503, end: 20160506
  24. VINCRISTINE [Suspect]
     Active Substance: VINCRISTINE
     Route: 065
     Dates: start: 20160524, end: 20160527
  25. VINCRISTINE [Suspect]
     Active Substance: VINCRISTINE
     Route: 065
     Dates: start: 20160614, end: 20160617
  26. VINCRISTINE [Suspect]
     Active Substance: VINCRISTINE
     Route: 065
     Dates: start: 20160712, end: 20160715
  27. VINCRISTINE [Suspect]
     Active Substance: VINCRISTINE
     Route: 065
     Dates: start: 20160809, end: 20160812
  28. PREDNISONE [Suspect]
     Active Substance: PREDNISONE
     Indication: Burkitt^s lymphoma
     Route: 065
     Dates: start: 20160406, end: 20160410
  29. PREDNISONE [Suspect]
     Active Substance: PREDNISONE
     Route: 065
     Dates: start: 20160524, end: 20160528
  30. PREDNISONE [Suspect]
     Active Substance: PREDNISONE
     Route: 065
     Dates: start: 20160613, end: 20160617
  31. PREDNISONE [Suspect]
     Active Substance: PREDNISONE
     Route: 065
     Dates: start: 20160712, end: 20160716
  32. ETOPOSIDE [Suspect]
     Active Substance: ETOPOSIDE
     Indication: Burkitt^s lymphoma
     Route: 065
     Dates: start: 20160406, end: 20160409
  33. ETOPOSIDE [Suspect]
     Active Substance: ETOPOSIDE
     Route: 065
     Dates: start: 20160503, end: 20160506
  34. ETOPOSIDE [Suspect]
     Active Substance: ETOPOSIDE
     Route: 065
     Dates: start: 20160524, end: 20160527
  35. ETOPOSIDE [Suspect]
     Active Substance: ETOPOSIDE
     Route: 065
     Dates: start: 20160614, end: 20160617
  36. ETOPOSIDE [Suspect]
     Active Substance: ETOPOSIDE
     Route: 065
     Dates: start: 20160712, end: 20160715
  37. ETOPOSIDE [Suspect]
     Active Substance: ETOPOSIDE
     Route: 065
     Dates: start: 20160809, end: 20160812
  38. METHOTREXATE [Suspect]
     Active Substance: METHOTREXATE
     Indication: Burkitt^s lymphoma
     Route: 065
     Dates: start: 20160527, end: 20160527
  39. METHOTREXATE [Suspect]
     Active Substance: METHOTREXATE
     Route: 065
     Dates: start: 20160617, end: 20160617
  40. METHOTREXATE [Suspect]
     Active Substance: METHOTREXATE
     Route: 065
     Dates: start: 20160715, end: 20160715
  41. METHOTREXATE [Suspect]
     Active Substance: METHOTREXATE
     Route: 065
     Dates: start: 20160812, end: 20160812
  42. PEGFILGRASTIM [Suspect]
     Active Substance: PEGFILGRASTIM
     Indication: Burkitt^s lymphoma
     Route: 065
     Dates: start: 20160413, end: 20160413
  43. PEGFILGRASTIM [Suspect]
     Active Substance: PEGFILGRASTIM
     Route: 065
     Dates: start: 20160507, end: 20160507
  44. PEGFILGRASTIM [Suspect]
     Active Substance: PEGFILGRASTIM
     Route: 065
     Dates: start: 20160528, end: 20160528
  45. PEGFILGRASTIM [Suspect]
     Active Substance: PEGFILGRASTIM
     Route: 065
     Dates: start: 20160618, end: 20160618
  46. PEGFILGRASTIM [Suspect]
     Active Substance: PEGFILGRASTIM
     Route: 065
     Dates: start: 20160717, end: 20160717

REACTIONS (3)
  - Colitis [Recovered/Resolved]
  - Skin infection [Recovered/Resolved]
  - Febrile neutropenia [Recovered/Resolved]

NARRATIVE: CASE EVENT DATE: 20160411
